FAERS Safety Report 14359317 (Version 1)
Quarter: 2018Q1

REPORT INFORMATION
  Report Type: Spontaneous
  Country: US (occurrence: US)
  Receive Date: 20180105
  Receipt Date: 20180105
  Transmission Date: 20180509
  Serious: No
  Sender: FDA-Public Use
  Company Number: US-SA-2017SA144909

PATIENT
  Age: 42 Year
  Sex: Male

DRUGS (3)
  1. PROAIR HFA [Concomitant]
     Active Substance: ALBUTEROL SULFATE
     Route: 065
  2. ZANTAC [Suspect]
     Active Substance: RANITIDINE HYDROCHLORIDE
     Indication: HYPERSENSITIVITY
     Dosage: 5 DAYS A WEEK OR SOMETIMES DAILY ALL WEEK
     Route: 048
  3. IBUPROFEN. [Concomitant]
     Active Substance: IBUPROFEN
     Dosage: FREQUENCY Q AM
     Route: 065

REACTIONS (1)
  - Drug screen false positive [Unknown]
